FAERS Safety Report 6721981-7 (Version None)
Quarter: 2010Q2

REPORT INFORMATION
  Report Type: 
  Country: None (occurrence: None)
  Receive Date: 20100512
  Receipt Date: 20100430
  Transmission Date: 20101027
  Serious: Yes (Other)
  Sender: FDA-Public Use
  Company Number: B0641139A

PATIENT
  Sex: Female

DRUGS (5)
  1. TYKERB [Suspect]
     Indication: DRUG USE FOR UNKNOWN INDICATION
     Dosage: 1250MG PER DAY
     Route: 048
     Dates: start: 20090812
  2. XELODA [Concomitant]
     Route: 048
     Dates: start: 20090812, end: 20090926
  3. GASTER D [Concomitant]
     Route: 048
     Dates: start: 20090901
  4. METOCLOPRAMIDE HYDROCHLORIDE [Concomitant]
     Indication: NAUSEA
     Route: 048
     Dates: start: 20090901
  5. OXYCONTIN [Concomitant]
     Indication: PAIN
     Route: 048
     Dates: start: 20090601, end: 20090901

REACTIONS (1)
  - DIARRHOEA [None]
